FAERS Safety Report 5058731-9 (Version None)
Quarter: 2006Q3

REPORT INFORMATION
  Report Type: 
  Country: None (occurrence: None)
  Receive Date: 20060721
  Receipt Date: 20050426
  Transmission Date: 20061208
  Serious: No
  Sender: FDA-Public Use
  Company Number: US-AMGEN-KDL129542

PATIENT
  Sex: Female

DRUGS (1)
  1. PROCRIT [Suspect]
     Indication: ANAEMIA

REACTIONS (5)
  - DIARRHOEA [None]
  - DYSPNOEA [None]
  - PARAESTHESIA [None]
  - PYREXIA [None]
  - VOMITING [None]
